FAERS Safety Report 10625532 (Version 3)
Quarter: 2015Q2

REPORT INFORMATION
  Report Type: Spontaneous
  Country: US (occurrence: US)
  Receive Date: 20141204
  Receipt Date: 20150506
  Transmission Date: 20150821
  Serious: No
  Sender: FDA-Public Use
  Company Number: US-PFIZER INC-2014331507

PATIENT
  Age: 51 Year
  Sex: Male

DRUGS (1)
  1. INLYTA [Suspect]
     Active Substance: AXITINIB
     Indication: RENAL CANCER
     Dosage: 1 MG TAB, 4 MG DAILY
     Dates: start: 20120720

REACTIONS (6)
  - Angiopathy [Unknown]
  - Infection [Not Recovered/Not Resolved]
  - Diarrhoea [Not Recovered/Not Resolved]
  - Tooth disorder [Unknown]
  - Weight decreased [Not Recovered/Not Resolved]
  - Visual impairment [Unknown]
